FAERS Safety Report 7639146-3 (Version None)
Quarter: 2011Q3

REPORT INFORMATION
  Report Type: 
  Country: None (occurrence: None)
  Receive Date: 20110727
  Receipt Date: 20110721
  Transmission Date: 20111222
  Serious: Yes (Hospitalization)
  Sender: FDA-Public Use
  Company Number: US-GENZYME-CAMP-1001766

PATIENT
  Sex: Female
  Weight: 61.224 kg

DRUGS (22)
  1. ATIVAN [Suspect]
     Indication: ANXIETY
     Dosage: 0.5 MG, PRN
     Route: 048
     Dates: start: 20110717, end: 20110717
  2. OMEPRAZOLE [Concomitant]
     Indication: PRODUCT USED FOR UNKNOWN INDICATION
     Dosage: 40 MG, QD
     Route: 048
     Dates: start: 20110717, end: 20110718
  3. PAROXETINE HCL [Concomitant]
     Indication: PRODUCT USED FOR UNKNOWN INDICATION
     Dosage: 30 MG, QD
     Route: 048
     Dates: start: 20110717, end: 20110718
  4. SACCHAROMYCES BOULARDII [Concomitant]
     Indication: CLOSTRIDIAL INFECTION
     Dosage: 250 MG, BID
     Route: 048
     Dates: start: 20110717, end: 20110718
  5. SODIUM CHLORIDE [Concomitant]
     Indication: INFUSION
     Dosage: 100 ML, Q1HR
     Route: 042
     Dates: start: 20110716, end: 20110718
  6. ALEMTUZUMAB [Suspect]
     Indication: MULTIPLE SCLEROSIS
  7. FERROUS SULFATE TAB [Concomitant]
     Indication: PRODUCT USED FOR UNKNOWN INDICATION
     Dosage: 325 MG, QD
  8. TYLENOL PM [Concomitant]
     Indication: PRODUCT USED FOR UNKNOWN INDICATION
     Dosage: UNK
  9. DONEPEZIL HCL [Concomitant]
     Indication: PRODUCT USED FOR UNKNOWN INDICATION
     Dosage: 10 MG, QD
  10. ACETAMINOPHEN [Concomitant]
     Indication: HEADACHE
     Dosage: 650 MG, PRN
     Route: 048
     Dates: start: 20110717, end: 20110717
  11. ACETAMINOPHEN [Concomitant]
     Indication: PAIN
  12. ADDERALL 10 [Concomitant]
     Indication: PRODUCT USED FOR UNKNOWN INDICATION
     Dosage: 5 MG, QD
     Dates: start: 20110719
  13. ACETAMINOPHEN [Concomitant]
     Indication: BODY TEMPERATURE INCREASED
  14. SODIUM CHLORIDE [Concomitant]
     Indication: DEHYDRATION
     Dosage: 3 ML, TID
     Route: 042
     Dates: start: 20110716, end: 20110716
  15. ATIVAN [Suspect]
     Indication: AGITATION
     Dosage: 1 MG, BID
     Route: 048
     Dates: start: 20110717
  16. METRONIDAZOLE [Concomitant]
     Indication: CLOSTRIDIAL INFECTION
     Dosage: 500 MG, TID
     Route: 048
     Dates: start: 20110717, end: 20110723
  17. POTASSIUM CHLORIDE [Concomitant]
     Indication: HYPOKALAEMIA
     Dosage: 40 MEQ, QID
     Route: 048
     Dates: start: 20110717, end: 20110717
  18. ATIVAN [Suspect]
     Indication: MENTAL STATUS CHANGES
     Dosage: 1 MG, PRN
     Route: 048
     Dates: start: 20110711, end: 20110716
  19. ATIVAN [Suspect]
     Indication: HEART RATE
  20. FIORICET [Suspect]
     Indication: MENTAL STATUS CHANGES
     Dosage: 50 MG, PRN
     Route: 048
     Dates: start: 20110714, end: 20110716
  21. HEPARIN [Concomitant]
     Indication: PROPHYLAXIS
     Dosage: 5000 U/ML, TID
     Route: 058
     Dates: start: 20110716, end: 20110717
  22. NITROFURANTOIN [Concomitant]
     Indication: URINARY TRACT INFECTION

REACTIONS (1)
  - MENTAL STATUS CHANGES [None]
